FAERS Safety Report 17953312 (Version 1)
Quarter: 2020Q2

REPORT INFORMATION
  Report Type: Spontaneous
  Country: PL (occurrence: PL)
  Receive Date: 20200627
  Receipt Date: 20200627
  Transmission Date: 20200714
  Serious: Yes (Hospitalization, Other)
  Sender: FDA-Public Use
  Company Number: NVSC2020PL175766

PATIENT
  Age: 63 Year
  Sex: Female

DRUGS (4)
  1. SOMATULIN [Concomitant]
     Active Substance: LANREOTIDE ACETATE
     Indication: PRODUCT USED FOR UNKNOWN INDICATION
     Route: 065
  2. SANDOSTATIN LAR DEPOT [Suspect]
     Active Substance: OCTREOTIDE ACETATE
     Indication: NEUROENDOCRINE TUMOUR
     Dosage: UNK
     Route: 065
     Dates: end: 201103
  3. DOTATATE [Concomitant]
     Active Substance: OXODOTREOTIDE
     Indication: PRODUCT USED FOR UNKNOWN INDICATION
     Dosage: UNK
     Route: 065
     Dates: start: 20110727, end: 20110921
  4. SANDOSTATIN LAR DEPOT [Suspect]
     Active Substance: OCTREOTIDE ACETATE
     Dosage: 30 MG
     Route: 065

REACTIONS (20)
  - Hyperparathyroidism secondary [Unknown]
  - Metastases to lymph nodes [Unknown]
  - Nephrolithiasis [Unknown]
  - Flushing [Not Recovered/Not Resolved]
  - Osteoporosis [Unknown]
  - Haematuria [Unknown]
  - Abdominal pain upper [Unknown]
  - Diarrhoea [Unknown]
  - Blood parathyroid hormone increased [Unknown]
  - Haematochezia [Unknown]
  - Forearm fracture [Unknown]
  - Neuroendocrine tumour [Unknown]
  - Telangiectasia [Unknown]
  - Normocytic anaemia [Unknown]
  - Malignant neoplasm progression [Unknown]
  - Abdominal discomfort [Unknown]
  - Underweight [Unknown]
  - Renal disorder [Unknown]
  - Chronic kidney disease [Unknown]
  - Asthenia [Unknown]

NARRATIVE: CASE EVENT DATE: 201208
